FAERS Safety Report 17206396 (Version 1)
Quarter: 2019Q4

REPORT INFORMATION
  Report Type: Spontaneous
  Country: US (occurrence: US)
  Receive Date: 20191227
  Receipt Date: 20191227
  Transmission Date: 20200122
  Serious: Yes (Other)
  Sender: FDA-Public Use
  Company Number: US-GLAXOSMITHKLINE-US2019AMR234252

PATIENT
  Sex: Female

DRUGS (4)
  1. PREDNISONE. [Concomitant]
     Active Substance: PREDNISONE
     Indication: ARTHRALGIA
     Dosage: UNK
     Route: 065
  2. LEVODOPA [Concomitant]
     Active Substance: LEVODOPA
     Indication: PARKINSONISM
     Dosage: UNK
     Route: 065
  3. CELLCEPT [Concomitant]
     Active Substance: MYCOPHENOLATE MOFETIL\MYCOPHENOLATE MOFETIL HYDROCHLORIDE
     Indication: PRODUCT USED FOR UNKNOWN INDICATION
     Dosage: UNK
     Route: 065
  4. BENLYSTA [Suspect]
     Active Substance: BELIMUMAB
     Indication: PRODUCT USED FOR UNKNOWN INDICATION
     Dosage: UNK
     Route: 065
     Dates: start: 20191214

REACTIONS (11)
  - Aphasia [Unknown]
  - Sleep disorder [Unknown]
  - Mobility decreased [Unknown]
  - Fatigue [Unknown]
  - Arthralgia [Unknown]
  - Confusional state [Unknown]
  - Hyperhidrosis [Unknown]
  - Dyskinesia [Unknown]
  - Systemic lupus erythematosus [Unknown]
  - Insomnia [Unknown]
  - Mental impairment [Unknown]

NARRATIVE: CASE EVENT DATE: 20191216
